FAERS Safety Report 14058153 (Version 1)
Quarter: 2017Q4

REPORT INFORMATION
  Report Type: Report from Study
  Country: US (occurrence: US)
  Receive Date: 20171006
  Receipt Date: 20171006
  Transmission Date: 20180321
  Serious: Yes (Hospitalization)
  Sender: FDA-Public Use
  Company Number: US-ACTELION-A-NJ2017-160482

PATIENT
  Age: 54 Year
  Sex: Male

DRUGS (8)
  1. MELATONIN [Concomitant]
     Active Substance: MELATONIN
  2. ADCIRCA [Concomitant]
     Active Substance: TADALAFIL
  3. ALLOPURINOL. [Concomitant]
     Active Substance: ALLOPURINOL
  4. PREDNISONE. [Concomitant]
     Active Substance: PREDNISONE
  5. COLCHICINE. [Concomitant]
     Active Substance: COLCHICINE
  6. TRACLEER [Suspect]
     Active Substance: BOSENTAN
     Indication: PULMONARY ARTERIAL HYPERTENSION
     Dosage: 125 MG, BID
     Route: 048
     Dates: start: 20140916
  7. BUMETANIDE. [Concomitant]
     Active Substance: BUMETANIDE
  8. MYCOPHENOLATE [Concomitant]
     Active Substance: MYCOPHENOLIC ACID

REACTIONS (1)
  - Lung transplant [Unknown]
